FAERS Safety Report 7814466-8 (Version None)
Quarter: 2011Q4

REPORT INFORMATION
  Report Type: 
  Country: None (occurrence: None)
  Receive Date: 20111014
  Receipt Date: 20111007
  Transmission Date: 20120403
  Serious: Yes (Disabling, Other)
  Sender: FDA-Public Use
  Company Number: PHHY2011FR82906

PATIENT
  Sex: Female
  Weight: 70 kg

DRUGS (3)
  1. ACETAMINOPHEN [Concomitant]
     Dosage: 4 G,DAILY
     Dates: start: 20110529, end: 20110601
  2. FENOFIBRATE [Concomitant]
     Indication: HYPERCHOLESTEROLAEMIA
     Dosage: UNK UKN, UNK
  3. ZOLEDRONOC ACID [Suspect]
     Dosage: 5 MG, UNK
     Route: 042
     Dates: start: 20110530

REACTIONS (8)
  - ASTHENIA [None]
  - MALAISE [None]
  - PYREXIA [None]
  - ANAEMIA [None]
  - C-REACTIVE PROTEIN INCREASED [None]
  - SYSTEMIC INFLAMMATORY RESPONSE SYNDROME [None]
  - OEDEMA PERIPHERAL [None]
  - HEADACHE [None]
